FAERS Safety Report 4816999-5 (Version None)
Quarter: 2005Q4

REPORT INFORMATION
  Report Type: 
  Country: None (occurrence: None)
  Receive Date: 20051101
  Receipt Date: 20051028
  Transmission Date: 20060501
  Serious: Yes (Life-Threatening, Hospitalization)
  Sender: FDA-Public Use
  Company Number: US-GLAXOSMITHKLINE-A0580127A

PATIENT
  Age: 52 Year
  Sex: Female

DRUGS (4)
  1. COREG [Suspect]
     Indication: HYPERTENSION
     Dosage: 25MG TWICE PER DAY
     Route: 048
     Dates: start: 20050214, end: 20051020
  2. DIOVAN [Concomitant]
  3. SYNTHROID [Concomitant]
  4. ANESTHESIA [Concomitant]

REACTIONS (1)
  - HYPOTENSION [None]
